FAERS Safety Report 4647337-9 (Version None)
Quarter: 2005Q2

REPORT INFORMATION
  Report Type: 
  Country: None (occurrence: None)
  Receive Date: 20050426
  Receipt Date: 20050412
  Transmission Date: 20051028
  Serious: Yes (Hospitalization)
  Sender: FDA-Public Use
  Company Number: 2005UW03994

PATIENT
  Age: 26 Year
  Sex: Male

DRUGS (7)
  1. SEROQUEL [Suspect]
     Indication: SCHIZOPHRENIA
     Dosage: 1000 MG PO
     Route: 048
     Dates: start: 20041229
  2. SEROQUEL [Suspect]
     Indication: SCHIZOPHRENIA
     Dosage: 1200 MG PO
     Route: 048
     Dates: start: 20041231
  3. SEROQUEL [Suspect]
     Indication: SCHIZOPHRENIA
     Dosage: 1000 MG PO
     Route: 048
     Dates: start: 20050222
  4. SEROQUEL [Suspect]
     Indication: SCHIZOPHRENIA
     Dosage: 800 MG PO
     Route: 048
     Dates: start: 20050226, end: 20050228
  5. CLONAZEPAM [Concomitant]
  6. LORAZEPAM [Concomitant]
  7. ATIVAN [Concomitant]

REACTIONS (7)
  - ABNORMAL DREAMS [None]
  - AGITATION [None]
  - CONDITION AGGRAVATED [None]
  - PANIC ATTACK [None]
  - PARANOIA [None]
  - SELF-INJURIOUS IDEATION [None]
  - SOMATIC DELUSION [None]
